FAERS Safety Report 10507698 (Version 5)
Quarter: 2015Q2

REPORT INFORMATION
  Report Type: Report from Study
  Country: JP (occurrence: JP)
  Receive Date: 20141009
  Receipt Date: 20150416
  Transmission Date: 20150821
  Serious: Yes (Disabling)
  Sender: FDA-Public Use
  Company Number: JP-BAYER-2014-146300

PATIENT
  Age: 86 Year
  Sex: Male

DRUGS (14)
  1. ADEMPAS [Suspect]
     Active Substance: RIOCIGUAT
     Indication: PULMONARY HYPERTENSION
     Dosage: DAILY DOSE 4.5 MG
     Route: 048
     Dates: start: 20140712, end: 20140718
  2. BERAPROST SODIUM [Concomitant]
     Active Substance: BERAPROST SODIUM
     Dosage: DAILY DOSE 120 ?G
     Route: 048
     Dates: end: 20140616
  3. UNFRACTIONATED HEPARIN [Concomitant]
     Active Substance: HEPARIN SODIUM
     Dosage: DAILY DOSE 15000 MG
  4. DOPAMINE [Concomitant]
     Active Substance: DOPAMINE\DOPAMINE HYDROCHLORIDE
     Dosage: DAILY DOSE 600 MG
     Dates: start: 20140616
  5. ADEMPAS [Suspect]
     Active Substance: RIOCIGUAT
     Indication: PULMONARY HYPERTENSION
     Dosage: DAILY DOSE 6 MG
     Route: 048
     Dates: start: 20140719, end: 20140728
  6. ADEMPAS [Suspect]
     Active Substance: RIOCIGUAT
     Indication: PULMONARY HYPERTENSION
     Dosage: DAILY DOSE 1.5 MG
     Route: 048
     Dates: start: 20140614, end: 20140703
  7. ADEMPAS [Suspect]
     Active Substance: RIOCIGUAT
     Indication: PULMONARY HYPERTENSION
     Dosage: DAILY DOSE 3 MG
     Route: 048
     Dates: start: 20140704, end: 20140711
  8. ADEMPAS [Suspect]
     Active Substance: RIOCIGUAT
     Indication: PULMONARY HYPERTENSION
     Dosage: DAILY DOSE 4.5 MG
     Route: 048
     Dates: start: 20140729, end: 20140805
  9. NICORANDIL [Suspect]
     Active Substance: NICORANDIL
     Dosage: DAILY DOSE 15 MG
     Route: 048
     Dates: end: 20140618
  10. PIMOBENDAN [Concomitant]
     Active Substance: PIMOBENDAN
     Dosage: DAILY DOSE 2.5 MG
     Route: 048
  11. TANATRIL [Concomitant]
     Active Substance: IMIDAPRIL
     Dosage: DAILY DOSE 2.5 MG
     Route: 048
     Dates: end: 20140618
  12. ADEMPAS [Suspect]
     Active Substance: RIOCIGUAT
     Indication: PULMONARY HYPERTENSION
     Dosage: DAILY DOSE 1.5 MG
     Route: 048
     Dates: start: 20140821, end: 20140827
  13. SPIRONOLACTONE. [Concomitant]
     Active Substance: SPIRONOLACTONE
     Dosage: DAILY DOSE 50 MG
     Route: 048
     Dates: end: 20140619
  14. NEXIUM [Concomitant]
     Active Substance: ESOMEPRAZOLE MAGNESIUM
     Indication: PROPHYLAXIS
     Dosage: DAILY DOSE 20 MG
     Route: 048

REACTIONS (3)
  - Hypotension [Recovered/Resolved]
  - Ventilation perfusion mismatch [None]
  - Respiratory failure [Recovered/Resolved]

NARRATIVE: CASE EVENT DATE: 20140616
